FAERS Safety Report 13952280 (Version 1)
Quarter: 2017Q3

REPORT INFORMATION
  Report Type: Spontaneous
  Country: US (occurrence: US)
  Receive Date: 20170911
  Receipt Date: 20170911
  Transmission Date: 20171128
  Serious: Yes (Death)
  Sender: FDA-Public Use
  Company Number: US-TEVA-691631USA

PATIENT
  Sex: Female
  Weight: 52.21 kg

DRUGS (1)
  1. FENTANYL. [Suspect]
     Active Substance: FENTANYL
     Indication: PAIN
     Dates: start: 2007, end: 20150926

REACTIONS (2)
  - Product leakage [Unknown]
  - Accidental overdose [Fatal]
